FAERS Safety Report 9422384 (Version 4)
Quarter: 2015Q2

REPORT INFORMATION
  Report Type: Spontaneous
  Country: US (occurrence: US)
  Receive Date: 20130726
  Receipt Date: 20150519
  Transmission Date: 20150821
  Serious: Yes (Hospitalization)
  Sender: FDA-Public Use
  Company Number: US-PFIZER INC-2013103843

PATIENT
  Age: 68 Year
  Sex: Female
  Weight: 61.09 kg

DRUGS (35)
  1. LYRICA [Suspect]
     Active Substance: PREGABALIN
     Indication: FIBROMYALGIA
     Dosage: 150 MG, 2X/DAY
     Route: 048
     Dates: start: 20111213
  2. NITROSTAT [Suspect]
     Active Substance: NITROGLYCERIN
     Indication: MITRAL VALVE DISEASE
     Dosage: 0.4 MG, (DISSOLVE 1 TABLET UNDER THE TOUNGE AS NEEDED FOR CHEST PAIN)AS NEEDED
     Route: 060
     Dates: start: 20131119
  3. FERROUS GLUCONATE [Concomitant]
     Active Substance: FERROUS GLUCONATE
     Dosage: 324 MG, 2X/WEEK
     Route: 048
  4. VITAMIN B12 [Concomitant]
     Active Substance: CYANOCOBALAMIN
     Dosage: 500 ?G, DAILY
     Route: 048
     Dates: start: 20130402
  5. VENTOLIN HFA [Concomitant]
     Active Substance: ALBUTEROL SULFATE
     Indication: BRONCHITIS
     Dosage: UNK, (INHALE 1 TO 2 PUFFS EVERY 6 HOURS) AS NEEDED
     Dates: start: 20120730
  6. TEMAZEPAM. [Concomitant]
     Active Substance: TEMAZEPAM
     Indication: PAIN
     Dosage: UNK, (1 TO 2 CAPSULES AT BEDTIME)
     Route: 048
  7. TRAMADOL HYDROCHLORIDE. [Concomitant]
     Active Substance: TRAMADOL HYDROCHLORIDE
     Indication: FIBROMYALGIA
  8. CEPHALEXIN /00145501/ [Concomitant]
     Active Substance: CEPHALEXIN
     Indication: PAIN IN EXTREMITY
     Dosage: 250 MG, 3X/DAY
     Route: 048
     Dates: start: 20150321
  9. LIDOCAINE HCL [Concomitant]
     Active Substance: LIDOCAINE HYDROCHLORIDE
     Indication: OROPHARYNGEAL PAIN
     Dosage: (SWISH AND SPIT 5ML 3-4 TIMES DAILY AS NEEDED)
     Dates: start: 20140822
  10. VITAMIN B12 [Concomitant]
     Active Substance: CYANOCOBALAMIN
     Indication: VITAMIN B12 DEFICIENCY
     Dosage: 1 DF, 1X/DAY
  11. ASPIRIN 81 [Concomitant]
     Dosage: 81 MG, 1X/DAY
     Route: 048
  12. MULTI VIT [Concomitant]
     Dosage: 1 DF, DAILY
     Route: 048
  13. HYDROCODONE BITARTRATE AND ACETAMINOPHEN [Concomitant]
     Active Substance: ACETAMINOPHEN\HYDROCODONE BITARTRATE
     Indication: PAIN IN EXTREMITY
     Dosage: HYDROCODONE 5 MG, ACETAMINOPHEN 300 MG (TAKE 1 TABLET EVERY 4-6 HOURS AS NEEDED)
     Route: 048
     Dates: start: 20150321
  14. LYRICA [Suspect]
     Active Substance: PREGABALIN
     Indication: PAIN
  15. FLUOXETINE HYDROCHLORIDE. [Concomitant]
     Active Substance: FLUOXETINE HYDROCHLORIDE
     Dosage: 80 MG (TAKING 2 CAPSULES OF 40 MG) DAILY
     Route: 048
     Dates: start: 20110131
  16. MOMETASONE FUROATE. [Concomitant]
     Active Substance: MOMETASONE FUROATE
     Dosage: UNK, 1X/DAY (APPLY SPARINGLY TO AFFECTED AREA(S) ONCE DAILY AS NEEDED)
  17. VITAMIN K [Concomitant]
     Active Substance: PHYTONADIONE
     Dosage: 100 MG, 1X/DAY
     Route: 048
  18. WARFARIN SODIUM. [Concomitant]
     Active Substance: WARFARIN SODIUM
     Indication: ROUTINE HEALTH MAINTENANCE
     Dosage: TAKE TWO TABLETS BY MOUTH 4 DAYS A WEEK, 1 TABLET 3 DAYS A WEEK
     Route: 048
     Dates: start: 20131015
  19. CARVEDILOL. [Concomitant]
     Active Substance: CARVEDILOL
     Indication: PALPITATIONS
  20. FLUOXETINE HYDROCHLORIDE. [Concomitant]
     Active Substance: FLUOXETINE HYDROCHLORIDE
     Dosage: 40 MG, 2X/DAY
     Route: 048
  21. PRENATAL TABS [Concomitant]
     Dosage: 1 DF, 1X/DAY
  22. VENTOLIN HFA [Concomitant]
     Active Substance: ALBUTEROL SULFATE
     Indication: DYSPNOEA
  23. TRAMADOL HYDROCHLORIDE. [Concomitant]
     Active Substance: TRAMADOL HYDROCHLORIDE
     Indication: PAIN
     Dosage: 50 MG, 4X/DAY
     Route: 048
     Dates: start: 20130617
  24. CARVEDILOL. [Concomitant]
     Active Substance: CARVEDILOL
     Indication: MITRAL VALVE DISEASE
     Dosage: 25 MG, 2X/DAY(TAKE ONE TABLET BY MOUTH DAILY)
     Route: 048
     Dates: start: 20150129
  25. COMBIVENT RESPIMAT [Concomitant]
     Active Substance: ALBUTEROL SULFATE\IPRATROPIUM BROMIDE
     Indication: ASTHMA
     Dosage: 2 DF, 2X/DAY (INHALE TWO PUFFS BY MOUTH TWO TIMES DAILY AS NEEDED)
     Dates: start: 20140203
  26. AZITHROMYCIN [Concomitant]
     Active Substance: AZITHROMYCIN ANHYDROUS
     Indication: BRONCHITIS
     Dosage: UNK, (TAKE 2 TABLETS ON DAY 1 THEN TAKE 1 TABLET A DAY FOR 4 DAYS)
     Route: 048
     Dates: start: 20130115
  27. CALCIUM PLUS VITAMIN D [Concomitant]
     Active Substance: CALCIUM\VITAMIN D
     Dosage: 1 DF, DAILY
  28. SYSTANE (HYPROMELLOSE 2910 (4000 MPA.S)) [Concomitant]
     Active Substance: HYPROMELLOSE 2910 (4000 MPA.S)
     Dosage: ONE DROP IN EACH EYE DAILY AS NEEDED
  29. NITROSTAT [Suspect]
     Active Substance: NITROGLYCERIN
     Indication: CHEST PAIN
  30. SIMVASTATIN. [Concomitant]
     Active Substance: SIMVASTATIN
     Indication: HYPERLIPIDAEMIA
     Dosage: 20 MG, 1X/DAY
     Route: 048
     Dates: start: 20110131
  31. FIBER [Concomitant]
     Active Substance: PSYLLIUM HUSK
     Dosage: 625 MG, 1X/DAY(MOUTH DAILY)
     Route: 048
     Dates: start: 20140203
  32. TYLENOL PM [Concomitant]
     Active Substance: ACETAMINOPHEN\DIPHENHYDRAMINE
     Dosage: 1 DF, 1X/DAY (TAKE 1 CAPSULE AT BEDTIME AS NEEDED)
  33. METOPROLOL TARTRATE. [Concomitant]
     Active Substance: METOPROLOL TARTRATE
     Indication: HYPERTENSION
     Dosage: 1 TABLET (50MG) EVERY MORNING AND 1/2 TABLET IN EVENING
     Route: 048
     Dates: start: 20110204
  34. TYLENOL ARTHRITIS PAIN [Concomitant]
     Active Substance: ACETAMINOPHEN
     Dosage: 1300 MG, 2X/DAY  (TAKE 2 TABLETS TWICE DAILY)
  35. LISINOPRIL. [Concomitant]
     Active Substance: LISINOPRIL
     Indication: MITRAL VALVE DISEASE
     Dosage: 2.5 MG, DAILY
     Route: 048
     Dates: start: 20131017

REACTIONS (2)
  - Mitral valve disease [Unknown]
  - Tricuspid valve disease [Unknown]
